FAERS Safety Report 16415328 (Version 1)
Quarter: 2019Q2

REPORT INFORMATION
  Report Type: Spontaneous
  Country: US (occurrence: US)
  Receive Date: 20190611
  Receipt Date: 20190611
  Transmission Date: 20190711
  Serious: No
  Sender: FDA-Public Use
  Company Number: US-SA-2019SA048347

PATIENT
  Age: 38 Year
  Sex: Female

DRUGS (7)
  1. DUPIXENT [Suspect]
     Active Substance: DUPILUMAB
     Indication: DERMATITIS ATOPIC
     Dosage: 300 MG, QOW
     Route: 058
     Dates: start: 20181205
  2. BUDESONIDE. [Concomitant]
     Active Substance: BUDESONIDE
  3. LORAZEPAM. [Concomitant]
     Active Substance: LORAZEPAM
  4. PAROXETINE. [Concomitant]
     Active Substance: PAROXETINE
  5. GABAPENTIN. [Concomitant]
     Active Substance: GABAPENTIN
  6. OXAZEPAM. [Concomitant]
     Active Substance: OXAZEPAM
  7. PANTOPRAZOLE [Concomitant]
     Active Substance: PANTOPRAZOLE

REACTIONS (1)
  - Visual impairment [Not Recovered/Not Resolved]
